FAERS Safety Report 6861926-2 (Version None)
Quarter: 2010Q3

REPORT INFORMATION
  Report Type: 
  Country: None (occurrence: None)
  Receive Date: 20100721
  Receipt Date: 20100715
  Transmission Date: 20110219
  Serious: Yes (Life-Threatening, Other)
  Sender: FDA-Public Use
  Company Number: IT-ELI_LILLY_AND_COMPANY-IT201007000368

PATIENT
  Sex: Male

DRUGS (4)
  1. HUMALOG [Suspect]
     Indication: DIABETES MELLITUS
     Dosage: 3 IU, DAILY (1/D)
     Route: 058
     Dates: start: 20070101, end: 20100625
  2. HUMALOG [Suspect]
     Dosage: 2 IU, DAILY (1/D)
     Route: 058
     Dates: start: 20090101, end: 20100702
  3. LANTUS [Concomitant]
     Indication: DIABETES MELLITUS
     Dosage: 20 IU, DAILY (1/D)
     Route: 058
     Dates: start: 20070101, end: 20100625
  4. LANTUS [Concomitant]
     Dosage: 20 IU, DAILY (1/D)
     Route: 058
     Dates: start: 20090101, end: 20100702

REACTIONS (2)
  - HYPOGLYCAEMIA [None]
  - HYPOGLYCAEMIC COMA [None]
